FAERS Safety Report 7086791-2 (Version None)
Quarter: 2010Q4

REPORT INFORMATION
  Report Type: 
  Country: None (occurrence: None)
  Receive Date: 20101105
  Receipt Date: 20101025
  Transmission Date: 20110411
  Serious: Yes (Other)
  Sender: FDA-Public Use
  Company Number: IE-WATSON-2010-14125

PATIENT
  Sex: Female
  Weight: 33 kg

DRUGS (2)
  1. VECURONIUM BROMIDE [Suspect]
     Indication: NEUROMUSCULAR BLOCKING THERAPY
     Dosage: 75 UG/KG, UNK
     Route: 042
  2. SUXAMETHONIUM [Suspect]
     Indication: NEUROMUSCULAR BLOCKING THERAPY
     Dosage: 1 MG/KG, UNK
     Route: 042

REACTIONS (2)
  - DRUG ADMINISTRATION ERROR [None]
  - RESPIRATORY ARREST [None]
